FAERS Safety Report 17503004 (Version 1)
Quarter: 2020Q1

REPORT INFORMATION
  Report Type: Spontaneous
  Country: US (occurrence: US)
  Receive Date: 20200305
  Receipt Date: 20200305
  Transmission Date: 20200409
  Serious: No
  Sender: FDA-Public Use
  Company Number: US-ELI_LILLY_AND_COMPANY-US202002001991

PATIENT
  Age: 61 Year
  Sex: Male

DRUGS (10)
  1. LANTUS [Concomitant]
     Active Substance: INSULIN GLARGINE
     Indication: TYPE 2 DIABETES MELLITUS
     Dosage: UNK, UNKNOWN
     Route: 065
  2. HUMULIN R U-500 [Suspect]
     Active Substance: INSULIN HUMAN
     Indication: TYPE 2 DIABETES MELLITUS
     Dosage: 100 U, EACH MORNING
     Route: 058
     Dates: start: 201912
  3. HUMULIN R U-500 [Suspect]
     Active Substance: INSULIN HUMAN
     Dosage: 80 U, OTHER (MID DAY)
     Route: 058
     Dates: start: 201912
  4. HUMULIN R U-500 [Suspect]
     Active Substance: INSULIN HUMAN
     Indication: TYPE 2 DIABETES MELLITUS
     Dosage: 100 U, EACH MORNING
     Route: 058
     Dates: start: 201912
  5. HUMULIN R U-500 [Suspect]
     Active Substance: INSULIN HUMAN
     Dosage: 80 U, OTHER (MID DAY)
     Route: 058
     Dates: start: 201912
  6. HUMULIN R U-500 [Suspect]
     Active Substance: INSULIN HUMAN
     Dosage: 80 U, OTHER (MID DAY)
     Route: 058
     Dates: start: 201912
  7. HUMULIN R U-500 [Suspect]
     Active Substance: INSULIN HUMAN
     Dosage: 100 U, EACH MORNING
     Route: 058
     Dates: start: 201912
  8. HUMULIN R U-500 [Suspect]
     Active Substance: INSULIN HUMAN
     Dosage: 100 U, EACH EVENING
     Route: 058
     Dates: start: 201912
  9. HUMULIN R U-500 [Suspect]
     Active Substance: INSULIN HUMAN
     Dosage: 100 U, EACH EVENING
     Route: 058
     Dates: start: 201912
  10. HUMULIN R U-500 [Suspect]
     Active Substance: INSULIN HUMAN
     Dosage: 100 U, EACH EVENING
     Route: 058
     Dates: start: 201912

REACTIONS (3)
  - Injection site injury [Recovering/Resolving]
  - Injection site swelling [Recovering/Resolving]
  - Injection site induration [Recovering/Resolving]

NARRATIVE: CASE EVENT DATE: 201912
